FAERS Safety Report 11317317 (Version 1)
Quarter: 2015Q3

REPORT INFORMATION
  Report Type: Spontaneous
  Country: ES (occurrence: ES)
  Receive Date: 20150728
  Receipt Date: 20150728
  Transmission Date: 20151125
  Serious: Yes (Other)
  Sender: FDA-Public Use
  Company Number: PHHY2015ES088942

PATIENT

DRUGS (2)
  1. DIGOXIN. [Suspect]
     Active Substance: DIGOXIN
     Indication: TACHYCARDIA FOETAL
     Route: 015
  2. DIGOXIN. [Suspect]
     Active Substance: DIGOXIN
     Indication: HYDROPS FOETALIS

REACTIONS (3)
  - Premature baby [Unknown]
  - Foetal exposure during pregnancy [Unknown]
  - Drug ineffective [Unknown]
